FAERS Safety Report 7126106-4 (Version None)
Quarter: 2010Q4

REPORT INFORMATION
  Report Type: 
  Country: None (occurrence: None)
  Receive Date: 20101129
  Receipt Date: 20100219
  Transmission Date: 20110411
  Serious: Yes (Hospitalization)
  Sender: FDA-Public Use
  Company Number: JP-PFIZER INC-2009314504

PATIENT
  Age: 34 Year
  Sex: Female
  Weight: 100 kg

DRUGS (12)
  1. HALCION [Suspect]
     Indication: INSOMNIA
     Dosage: 0.25 MG, UNK
  2. MEDICON [Suspect]
     Indication: COUGH
     Dosage: FREQUENCY: 3X/DAY,
  3. RISPERDAL [Concomitant]
     Indication: SCHIZOPHRENIA
     Dosage: 2 MG, UNK
  4. AMITRIPTYLINE HCL [Concomitant]
     Indication: SCHIZOPHRENIA
     Dosage: 75 MG, UNK
  5. LEVOTOMIN [Concomitant]
     Indication: SCHIZOPHRENIA
     Dosage: 150 MG, UNK
  6. AKINETON [Concomitant]
     Indication: SCHIZOPHRENIA
     Dosage: 3 MG, UNK
  7. LEXOTAN [Concomitant]
     Indication: SCHIZOPHRENIA
     Dosage: 6 MG, UNK
  8. ROHYPNOL [Concomitant]
     Indication: SCHIZOPHRENIA
     Dosage: 2 MG, UNK
  9. RHYTHMY [Concomitant]
     Dosage: 2 MG, UNK
  10. LOXONIN [Concomitant]
  11. MEIACT [Concomitant]
  12. MUCODYNE [Concomitant]

REACTIONS (9)
  - COMA [None]
  - COMMUNICATION DISORDER [None]
  - CONFUSIONAL STATE [None]
  - INCORRECT DOSE ADMINISTERED [None]
  - LOSS OF CONSCIOUSNESS [None]
  - LUNG INFILTRATION [None]
  - RESPIRATORY DEPRESSION [None]
  - SEROTONIN SYNDROME [None]
  - SOMNOLENCE [None]
